FAERS Safety Report 16286966 (Version 2)
Quarter: 2019Q2

REPORT INFORMATION
  Report Type: Spontaneous
  Country: US (occurrence: US)
  Receive Date: 20190508
  Receipt Date: 20190515
  Transmission Date: 20190711
  Serious: No
  Sender: FDA-Public Use
  Company Number: US-PFIZER INC-2019193517

PATIENT
  Age: 38 Year
  Sex: Male
  Weight: 68.27 kg

DRUGS (1)
  1. ADVIL [Suspect]
     Active Substance: IBUPROFEN
     Dosage: 200 MG, 2X/DAY

REACTIONS (2)
  - Dyspepsia [Unknown]
  - Foreign body in respiratory tract [Unknown]
